FAERS Safety Report 11175258 (Version 1)
Quarter: 2015Q2

REPORT INFORMATION
  Report Type: Spontaneous
  Country: US (occurrence: None)
  Receive Date: 20150515
  Receipt Date: 20150515
  Transmission Date: 20150821
  Serious: Yes (Hospitalization, Other)
  Sender: FDA-Public Use
  Company Number: 2014000655

PATIENT
  Age: 50 Year
  Sex: Female
  Weight: 63.5 kg

DRUGS (7)
  1. ZYRTEC (CETRIZINE HYDROCHLORIDE) [Concomitant]
  2. IBUPROFEN. [Concomitant]
     Active Substance: IBUPROFEN
  3. HUMIRA [Suspect]
     Active Substance: ADALIMUMAB
     Route: 058
     Dates: start: 201205, end: 201301
  4. BUDESONIDE. [Concomitant]
     Active Substance: BUDESONIDE
  5. CIMZIA [Suspect]
     Active Substance: CERTOLIZUMAB PEGOL
     Indication: RHEUMATOID ARTHRITIS
     Dates: start: 201312, end: 201402
  6. PREDNISONE. [Concomitant]
     Active Substance: PREDNISONE
  7. ACTEMRA [Suspect]
     Active Substance: TOCILIZUMAB
     Dates: start: 201302, end: 201307

REACTIONS (1)
  - Lung adenocarcinoma stage I [None]

NARRATIVE: CASE EVENT DATE: 201401
